FAERS Safety Report 7253235-7 (Version None)
Quarter: 2011Q1

REPORT INFORMATION
  Report Type: 
  Country: None (occurrence: None)
  Receive Date: 20110129
  Receipt Date: 20100216
  Transmission Date: 20110831
  Serious: No
  Sender: FDA-Public Use
  Company Number: US-ABBOTT-10P-163-0627730-00

PATIENT
  Sex: Female
  Weight: 72.64 kg

DRUGS (6)
  1. HUMIRA [Suspect]
     Indication: CROHN'S DISEASE
     Route: 058
     Dates: start: 20091101
  2. MECLIZINE [Concomitant]
     Indication: NAUSEA
     Dosage: AS REQUIRED
  3. OMEPREZOLE [Concomitant]
     Indication: PRODUCT USED FOR UNKNOWN INDICATION
  4. AZASAN [Concomitant]
     Indication: CROHN'S DISEASE
  5. PRISTIQ [Concomitant]
     Indication: DEPRESSION
  6. VITAMIN B-12 [Concomitant]
     Indication: PRODUCT USED FOR UNKNOWN INDICATION

REACTIONS (3)
  - URTICARIA [None]
  - INJECTION SITE PAIN [None]
  - INJECTION SITE PRURITUS [None]
